FAERS Safety Report 4911115-3 (Version None)
Quarter: 2006Q1

REPORT INFORMATION
  Report Type: 
  Country: None (occurrence: None)
  Receive Date: 20060209
  Receipt Date: 20060130
  Transmission Date: 20060701
  Serious: Yes (Death, Other)
  Sender: FDA-Public Use
  Company Number: 2006RR-01559

PATIENT
  Age: 13 Year
  Sex: Male
  Weight: 31 kg

DRUGS (2)
  1. ACYCLOVIR SODIUM [Suspect]
     Dosage: 200 MG TID
     Dates: start: 20040101
  2. VALGANCICLOVIR [Suspect]
     Indication: CYTOMEGALOVIRUS CHORIORETINITIS
     Dosage: 225 MG QD (14.5 MG/KG) ORAL
     Route: 048
     Dates: start: 20040913, end: 20040914

REACTIONS (10)
  - BLOOD GLUCOSE INCREASED [None]
  - CONDITION AGGRAVATED [None]
  - CONFUSIONAL STATE [None]
  - ELECTROENCEPHALOGRAM ABNORMAL [None]
  - ENCEPHALITIS HERPES [None]
  - HALLUCINATION, VISUAL [None]
  - LYMPHOCYTIC LEUKAEMIA [None]
  - NEUROTOXICITY [None]
  - OVERDOSE [None]
  - RENAL FAILURE [None]
